FAERS Safety Report 6518935-2 (Version None)
Quarter: 2009Q4

REPORT INFORMATION
  Report Type: 
  Country: None (occurrence: None)
  Receive Date: 20091218
  Receipt Date: 20091204
  Transmission Date: 20100525
  Serious: Yes (Hospitalization, Other)
  Sender: FDA-Public Use
  Company Number: GB-EBEWE-1871FLUDARA09

PATIENT
  Age: 40 Year
  Sex: Female

DRUGS (2)
  1. FLUDARABINE [Suspect]
     Indication: PANCREATIC CARCINOMA METASTATIC
     Dosage: 48 MG, DAILY, IV
     Route: 042
     Dates: start: 20090918, end: 20090922
  2. CYCLOPHOSPHAMIDE [Suspect]
     Indication: PANCREATIC CARCINOMA METASTATIC
     Dosage: 4500 MG, IV
     Route: 042
     Dates: start: 20090916, end: 20090917

REACTIONS (4)
  - BLOOD BILIRUBIN INCREASED [None]
  - CLOSTRIDIUM DIFFICILE COLITIS [None]
  - NEUTROPENIC SEPSIS [None]
  - PLATELET COUNT DECREASED [None]
